FAERS Safety Report 6184315-5 (Version None)
Quarter: 2009Q2

REPORT INFORMATION
  Report Type: 
  Country: None (occurrence: None)
  Receive Date: 20090501
  Receipt Date: 20081207
  Transmission Date: 20091009
  Serious: Yes (Other)
  Sender: FDA-Public Use
  Company Number: 182609USA

PATIENT
  Age: 52 Year
  Sex: Male

DRUGS (3)
  1. OXYCODONE HCL [Suspect]
     Indication: PAIN
     Dosage: 400 MG (80 MG, 5 IN 1 D) , ORAL
     Route: 048
     Dates: start: 20070501, end: 20070801
  2. ESCITALOPRAM OXALATE [Concomitant]
  3. ATENOLOL [Concomitant]

REACTIONS (8)
  - ANXIETY [None]
  - CHILLS [None]
  - DRUG DEPENDENCE [None]
  - GLOSSODYNIA [None]
  - NEURALGIA [None]
  - PAIN IN EXTREMITY [None]
  - TONGUE DISORDER [None]
  - TREMOR [None]
